FAERS Safety Report 12960439 (Version 2)
Quarter: 2016Q4

REPORT INFORMATION
  Report Type: Report from Study
  Country: US (occurrence: US)
  Receive Date: 20161121
  Receipt Date: 20161214
  Transmission Date: 20170207
  Serious: Yes (Hospitalization, Other)
  Sender: FDA-Public Use
  Company Number: US-BRISTOL-MYERS SQUIBB COMPANY-20686135

PATIENT
  Age: 48 Year
  Sex: Male
  Weight: 82.6 kg

DRUGS (4)
  1. ZOLPIDEM [Concomitant]
     Active Substance: ZOLPIDEM\ZOLPIDEM TARTRATE
     Indication: PRODUCT USED FOR UNKNOWN INDICATION
     Dosage: TABS
     Route: 065
     Dates: start: 20140318
  2. IBUPROFEN. [Concomitant]
     Active Substance: IBUPROFEN
     Indication: PRODUCT USED FOR UNKNOWN INDICATION
     Dosage: TABS
     Route: 065
     Dates: start: 20140403
  3. ARIPIPRAZOLE. [Suspect]
     Active Substance: ARIPIPRAZOLE
     Indication: SCHIZOPHRENIA
     Dosage: 11APR14-UNK=10MG,QD ORAL
     Route: 048
     Dates: start: 20140403, end: 20140410
  4. ARIPIPRAZOLE. [Suspect]
     Active Substance: ARIPIPRAZOLE
     Indication: AKATHISIA
     Route: 065

REACTIONS (2)
  - Electrocardiogram abnormal [Unknown]
  - Presyncope [Recovered/Resolved]

NARRATIVE: CASE EVENT DATE: 20140410
